FAERS Safety Report 8344166-X (Version None)
Quarter: 2012Q2

REPORT INFORMATION
  Report Type: 
  Country: None (occurrence: None)
  Receive Date: 20120508
  Receipt Date: 20120501
  Transmission Date: 20120825
  Serious: Yes (Other)
  Sender: FDA-Public Use
  Company Number: PHFR2012GB001679

PATIENT
  Sex: Female

DRUGS (5)
  1. PANTOPRAZOLE [Concomitant]
     Route: 048
  2. CLOZARIL [Suspect]
     Route: 048
  3. CLOZARIL [Suspect]
     Indication: SCHIZOPHRENIA
     Dosage: 300 MG, DAILY
     Route: 048
     Dates: start: 20100811
  4. LAMOTRIGINE [Concomitant]
     Dosage: 125 MG, DAILY
     Route: 048
  5. VENLAFAXINE [Concomitant]
     Dosage: 225 MG, UNK
     Route: 048

REACTIONS (5)
  - ANTIPSYCHOTIC DRUG LEVEL INCREASED [None]
  - TACHYCARDIA [None]
  - ELECTROCARDIOGRAM REPOLARISATION ABNORMALITY [None]
  - SOMNOLENCE [None]
  - BUNDLE BRANCH BLOCK RIGHT [None]
